FAERS Safety Report 17848597 (Version 1)
Quarter: 2020Q2

REPORT INFORMATION
  Report Type: Report from Study
  Country: None (occurrence: US)
  Receive Date: 20200602
  Receipt Date: 20200602
  Transmission Date: 20200714
  Serious: Yes (Other)
  Sender: FDA-Public Use
  Company Number: US-ABBVIE-20K-163-3422806-00

PATIENT
  Age: 49 Year
  Sex: Female

DRUGS (1)
  1. HUMIRA [Suspect]
     Active Substance: ADALIMUMAB
     Indication: PSORIASIS
     Dosage: CITRATE FREE
     Route: 058
     Dates: start: 202005

REACTIONS (4)
  - Fungal skin infection [Unknown]
  - Systemic lupus erythematosus [Unknown]
  - Urine output increased [Unknown]
  - Fatigue [Unknown]

NARRATIVE: CASE EVENT DATE: 202005
